FAERS Safety Report 15080166 (Version 1)
Quarter: 2018Q2

REPORT INFORMATION
  Report Type: Spontaneous
  Country: US (occurrence: US)
  Receive Date: 20180627
  Receipt Date: 20180627
  Transmission Date: 20180711
  Serious: No
  Sender: FDA-Public Use
  Company Number: US-JNJFOC-20180616498

PATIENT
  Sex: Male
  Weight: 63.5 kg

DRUGS (2)
  1. ZYTIGA [Suspect]
     Active Substance: ABIRATERONE ACETATE
     Indication: PROSTATE CANCER
     Route: 048
     Dates: start: 201710, end: 2018
  2. ZYTIGA [Suspect]
     Active Substance: ABIRATERONE ACETATE
     Indication: PROSTATE CANCER
     Route: 048
     Dates: start: 2018

REACTIONS (3)
  - Adverse drug reaction [Recovering/Resolving]
  - Dental restoration failure [Unknown]
  - Tooth disorder [Unknown]

NARRATIVE: CASE EVENT DATE: 2018
